FAERS Safety Report 10386748 (Version 1)
Quarter: 2014Q1

REPORT INFORMATION
  Report Type: Spontaneous
  Country: US (occurrence: None)
  Receive Date: 20140306
  Receipt Date: 20140306
  Transmission Date: 20141002
  Serious: Yes (Disabling)
  Sender: FDA-Public Use
  Company Number: 163-21880-13062276

PATIENT
  Age: 82 Year
  Sex: Female

DRUGS (2)
  1. REVLIMID [Suspect]
     Indication: MYELODYSPLASTIC SYNDROME
     Dosage: 21 IN 28 D
     Route: 048
     Dates: start: 20121022
  2. BLOOD (BLOOD AND RELATED PRODUCTS) [Concomitant]

REACTIONS (3)
  - Myelodysplastic syndrome [None]
  - No therapeutic response [None]
  - Disease progression [None]
